FAERS Safety Report 23426822 (Version 1)
Quarter: 2024Q1

REPORT INFORMATION
  Report Type: Spontaneous
  Country: PL (occurrence: PL)
  Receive Date: 20240122
  Receipt Date: 20240122
  Transmission Date: 20240410
  Serious: Yes (Hospitalization)
  Sender: FDA-Public Use
  Company Number: PL-MYLANLABS-2024M1005332

PATIENT
  Age: 32 Year
  Sex: Female

DRUGS (2)
  1. BROMOCRIPTINE [Suspect]
     Active Substance: BROMOCRIPTINE
     Indication: Neuroleptic malignant syndrome
     Dosage: UNK, RECEIVED TWO WEEKS TREATMENT
     Route: 065
  2. LORAZEPAM [Suspect]
     Active Substance: LORAZEPAM
     Indication: Neuroleptic malignant syndrome
     Dosage: UNK, RECEIVED TWO WEEKS TREATMENT
     Route: 065

REACTIONS (2)
  - Drug ineffective for unapproved indication [Unknown]
  - Off label use [Unknown]
